FAERS Safety Report 4615354-0 (Version None)
Quarter: 2005Q1

REPORT INFORMATION
  Report Type: 
  Country: None (occurrence: None)
  Receive Date: 20050317
  Receipt Date: 20050311
  Transmission Date: 20050727
  Serious: Yes (Life-Threatening, Hospitalization)
  Sender: FDA-Public Use
  Company Number: 2003AP03099

PATIENT
  Age: 68 Year
  Sex: Female
  Weight: 65 kg

DRUGS (15)
  1. NEXIUM [Suspect]
     Dosage: 40 MG DAILY PO
     Route: 048
     Dates: start: 20030424, end: 20030426
  2. IMDUR [Suspect]
     Indication: CARDIAC FAILURE CONGESTIVE
     Dosage: 60 MG DAILY PO
     Route: 048
  3. ALLOPURINOL [Suspect]
     Dosage: 100 MG DAILY PO
     Route: 048
     Dates: end: 20030425
  4. ASPIRIN [Suspect]
     Indication: CARDIAC FAILURE CONGESTIVE
     Dosage: 100 MG DAILY PO
     Route: 048
     Dates: end: 20030425
  5. FOSAMAX [Suspect]
     Dosage: 70 MG WEEK PO
     Route: 048
     Dates: end: 20030425
  6. FRUSEMIDE [Suspect]
     Indication: CARDIAC FAILURE CONGESTIVE
     Dosage: 40 MG DAILY
     Dates: end: 20030425
  7. MONOPRIL [Suspect]
     Indication: CARDIAC FAILURE CONGESTIVE
     Dosage: 30 MG DAILY PO
     Route: 048
     Dates: end: 20030425
  8. INDOCIN [Suspect]
     Dosage: 1 DF DAILY
     Dates: end: 20030425
  9. MAXIDEX [Concomitant]
  10. OCUFEN [Concomitant]
  11. SUCRALFATE [Concomitant]
  12. ZANTAC [Concomitant]
  13. DEXAMETHASONE [Concomitant]
  14. ASTRIX [Concomitant]
  15. LOSEC [Concomitant]

REACTIONS (5)
  - DIALYSIS [None]
  - EOSINOPHILIA [None]
  - METABOLIC ACIDOSIS [None]
  - RENAL FAILURE ACUTE [None]
  - URINARY TRACT INFECTION [None]
